FAERS Safety Report 18979225 (Version 1)
Quarter: 2021Q1

REPORT INFORMATION
  Report Type: Report from Study
  Country: JP (occurrence: JP)
  Receive Date: 20210308
  Receipt Date: 20210308
  Transmission Date: 20210420
  Serious: Yes (Other)
  Sender: FDA-Public Use
  Company Number: JP-RECORDATI RARE DISEASES INC.-2020004811

PATIENT
  Age: 8 Day
  Sex: Male
  Weight: 1.16 kg

DRUGS (19)
  1. PLEAMIN P [Concomitant]
     Indication: PRODUCT USED FOR UNKNOWN INDICATION
     Dosage: UNK, UNK
     Route: 065
     Dates: start: 20200424, end: 20200517
  2. DOPAMINE HYDROCHLORIDE. [Concomitant]
     Active Substance: DOPAMINE HYDROCHLORIDE
     Indication: PRODUCT USED FOR UNKNOWN INDICATION
     Dosage: UNK, UNK
     Route: 065
     Dates: start: 20200422, end: 20200503
  3. CALCICOL [Concomitant]
     Active Substance: CALCIUM GLUCONATE
     Indication: PRODUCT USED FOR UNKNOWN INDICATION
     Dosage: UNK, UNK
     Route: 065
     Dates: start: 20200422, end: 20200513
  4. KCL + GLUCOSE 5% [Concomitant]
     Indication: PRODUCT USED FOR UNKNOWN INDICATION
     Dosage: UNK, UNK
     Route: 065
     Dates: start: 20200427, end: 20200506
  5. FUROSEMIDE. [Concomitant]
     Active Substance: FUROSEMIDE
     Indication: PRODUCT USED FOR UNKNOWN INDICATION
     Dosage: UNK, UNK
     Route: 065
     Dates: start: 20200425, end: 20200526
  6. NEOPROFEN [Suspect]
     Active Substance: IBUPROFEN LYSINE
     Dosage: 6 MILLIGRAM, QD
     Route: 042
     Dates: start: 20200429, end: 20200429
  7. FENTANYL. [Concomitant]
     Active Substance: FENTANYL
     Indication: PRODUCT USED FOR UNKNOWN INDICATION
     Dosage: UNK, UNK
     Route: 065
     Dates: start: 20200422, end: 20200428
  8. KAYTWO N [Concomitant]
     Active Substance: MENATETRENONE
     Indication: PRODUCT USED FOR UNKNOWN INDICATION
     Dosage: UNK, UNK
     Route: 065
     Dates: start: 20200428, end: 20200501
  9. BIOFERMIN [LACTOMIN] [Concomitant]
     Active Substance: DIETARY SUPPLEMENT\PROBIOTICS
     Indication: PRODUCT USED FOR UNKNOWN INDICATION
     Dosage: UNK, UNK
     Route: 065
     Dates: start: 20200423, end: 20200610
  10. VICCILLIN [AMPICILLIN SODIUM] [Concomitant]
     Indication: PRODUCT USED FOR UNKNOWN INDICATION
     Dosage: UNK, UNK
     Route: 065
     Dates: start: 20200422, end: 20200511
  11. GLUCOSE OTSUKA [Concomitant]
     Indication: PRODUCT USED FOR UNKNOWN INDICATION
     Dosage: UNK, UNK
     Route: 065
     Dates: start: 20200424, end: 20200506
  12. NORMAL SALINE [Concomitant]
     Active Substance: SODIUM CHLORIDE
     Dosage: UNK, UNK
     Route: 065
     Dates: start: 20200422, end: 20200501
  13. GLUCOSE MONOHYDRATE [Concomitant]
     Active Substance: DEXTROSE MONOHYDRATE
     Indication: PRODUCT USED FOR UNKNOWN INDICATION
     Dosage: UNK, UNK
     Route: 065
     Dates: start: 20200424, end: 20200517
  14. HEPARINE SODIUM [Concomitant]
     Active Substance: HEPARIN SODIUM
     Indication: PRODUCT USED FOR UNKNOWN INDICATION
     Dosage: UNK, UNK
     Route: 065
     Dates: start: 20200422, end: 20200517
  15. SODIUM PHOSPHATE [Concomitant]
     Active Substance: SODIUM PHOSPHATE
     Indication: PRODUCT USED FOR UNKNOWN INDICATION
     Dosage: UNK, UNK
     Route: 065
     Dates: start: 20200428, end: 20200517
  16. NEOPROFEN [Suspect]
     Active Substance: IBUPROFEN LYSINE
     Indication: PATENT DUCTUS ARTERIOSUS
     Dosage: 12 MILLIGRAM, QD
     Route: 042
     Dates: start: 20200428, end: 20200428
  17. NEOPROFEN [Suspect]
     Active Substance: IBUPROFEN LYSINE
     Dosage: 6 MILLIGRAM, QD
     Route: 042
     Dates: start: 20200430, end: 20200430
  18. NORMAL SALINE [Concomitant]
     Active Substance: SODIUM CHLORIDE
     Indication: PRODUCT USED FOR UNKNOWN INDICATION
     Dosage: UNK, UNK
     Route: 065
     Dates: start: 20200422, end: 20200428
  19. MULTAMIN [ASCORBIC ACID;BIOTIN;COLECALCIFEROL;CYANOCOBALAMIN;FOLIC ACI [Concomitant]
     Indication: PRODUCT USED FOR UNKNOWN INDICATION
     Dosage: UNK, UNK
     Route: 065
     Dates: start: 20200424, end: 20200517

REACTIONS (2)
  - Pulmonary haemorrhage [Recovering/Resolving]
  - Renal disorder [Recovered/Resolved]

NARRATIVE: CASE EVENT DATE: 20200430
